FAERS Safety Report 13635539 (Version 1)
Quarter: 2017Q2

REPORT INFORMATION
  Report Type: Spontaneous
  Country: US (occurrence: US)
  Receive Date: 20170609
  Receipt Date: 20170609
  Transmission Date: 20170830
  Serious: No
  Sender: FDA-Public Use
  Company Number: US-PFIZER INC-2017250651

PATIENT
  Sex: Female

DRUGS (1)
  1. XELJANZ XR [Suspect]
     Active Substance: TOFACITINIB CITRATE
     Dosage: 11 MG, AS NEEDED

REACTIONS (14)
  - Arthralgia [Unknown]
  - Dry mouth [Unknown]
  - Alopecia [Unknown]
  - Constipation [Unknown]
  - Psoriasis [Unknown]
  - Back pain [Unknown]
  - Musculoskeletal pain [Not Recovered/Not Resolved]
  - Joint range of motion decreased [Unknown]
  - Musculoskeletal stiffness [Unknown]
  - Fatigue [Unknown]
  - Spinal pain [Unknown]
  - Grip strength decreased [Unknown]
  - Intentional product misuse [Unknown]
  - Sleep disorder [Unknown]
